FAERS Safety Report 4591406-9 (Version None)
Quarter: 2005Q1

REPORT INFORMATION
  Report Type: 
  Country: None (occurrence: None)
  Receive Date: 20050222
  Receipt Date: 20050209
  Transmission Date: 20050727
  Serious: Yes (Death, Hospitalization)
  Sender: FDA-Public Use
  Company Number: 2005026637

PATIENT
  Age: 65 Year
  Sex: Male

DRUGS (1)
  1. ZITHROMAX [Suspect]
     Indication: PNEUMONIA
     Dosage: 500 MG (500 MG, 1IN 1
     Dates: start: 20050101, end: 20050102

REACTIONS (2)
  - CONDITION AGGRAVATED [None]
  - PNEUMONIA [None]
